FAERS Safety Report 20859025 (Version 2)
Quarter: 2022Q2

REPORT INFORMATION
  Report Type: Report from Study
  Country: ES (occurrence: ES)
  Receive Date: 20220523
  Receipt Date: 20220608
  Transmission Date: 20220721
  Serious: Yes (Disabling, Other)
  Sender: FDA-Public Use
  Company Number: ES-AUROBINDO-AUR-APL-2022-018281

PATIENT
  Age: 82 Year
  Sex: Male

DRUGS (4)
  1. BUPIVACAINE [Suspect]
     Active Substance: BUPIVACAINE
     Indication: Nerve block
     Dosage: TOTAL DOSE (LIDO+BUPI+HYALURONIDASE): 4ML
     Route: 065
  2. LIDOCAINE [Suspect]
     Active Substance: LIDOCAINE
     Indication: Nerve block
     Dosage: TOTAL DOSE (LIDO+BUPI+HYALURONIDASE): 4ML
     Route: 056
  3. HYALURONIDASE [Suspect]
     Active Substance: HYALURONIDASE
     Indication: Product used for unknown indication
     Dosage: 150 INTERNATIONAL UNIT, (TOTAL DOSE (LIDO+BUPI+HYALURONIDASE): 4ML )
     Route: 065
  4. ACENOCOUMAROL [Concomitant]
     Active Substance: ACENOCOUMAROL
     Indication: Atrial fibrillation
     Dosage: UNK
     Route: 065

REACTIONS (6)
  - Acute macular neuroretinopathy [Recovered/Resolved with Sequelae]
  - Retinal artery occlusion [Unknown]
  - Optic atrophy [Unknown]
  - Retinal degeneration [Unknown]
  - Atrophy [Unknown]
  - Visual field defect [Unknown]
